FAERS Safety Report 13225458 (Version 1)
Quarter: 2017Q1

REPORT INFORMATION
  Report Type: Spontaneous
  Country: US (occurrence: US)
  Receive Date: 20170211
  Receipt Date: 20170211
  Transmission Date: 20170428
  Serious: No
  Sender: FDA-Public Use
  Company Number: None

PATIENT
  Age: 78 Year
  Sex: Male

DRUGS (1)
  1. SUTENT [Suspect]
     Active Substance: SUNITINIB MALATE
     Indication: RENAL CANCER
     Dosage: FREQUENCY - DAILY 2 WEEKS ON 1
     Route: 048
     Dates: start: 20160622, end: 20170201

REACTIONS (1)
  - Gastric disorder [None]

NARRATIVE: CASE EVENT DATE: 20170101
